FAERS Safety Report 8621756-8 (Version None)
Quarter: 2012Q3

REPORT INFORMATION
  Report Type: 
  Country: None (occurrence: None)
  Receive Date: 20120821
  Receipt Date: 20120821
  Transmission Date: 20120928
  Serious: No
  Sender: FDA-Public Use
  Company Number: None

PATIENT
  Sex: Female

DRUGS (1)
  1. ZONEGRAN [Suspect]
     Indication: EPILEPSY
     Dosage: 2 CAPS DAILY

REACTIONS (2)
  - PRODUCT SUBSTITUTION ISSUE [None]
  - ANTICONVULSANT DRUG LEVEL DECREASED [None]
